FAERS Safety Report 8871253 (Version 1)
Quarter: 2012Q4

REPORT INFORMATION
  Report Type: 
  Country: US (occurrence: US)
  Receive Date: 20121026
  Receipt Date: 20121026
  Transmission Date: 20130627
  Serious: No
  Sender: FDA-Public Use
  Company Number: US-AMGEN-USASP2012048160

PATIENT
  Age: 63 Year
  Sex: Female
  Weight: 74.83 kg

DRUGS (15)
  1. ENBREL [Suspect]
     Indication: PRODUCT USED FOR UNKNOWN INDICATION
     Dosage: 50 mg, qwk
     Route: 058
  2. PREDNISONE                         /00044702/ [Concomitant]
     Dosage: UNK
  3. SERTRALIN                          /01011401/ [Concomitant]
     Dosage: 25 mg, UNK
  4. AMLODIPINE [Concomitant]
     Dosage: 5 mg, UNK
  5. METHOTREXATE [Concomitant]
     Dosage: 2.5 mg, UNK
  6. LIPITOR [Concomitant]
     Dosage: 10 mg, UNK
  7. ALLERGY                            /00000402/ [Concomitant]
     Dosage: 10 mg, UNK
  8. FISH OIL [Concomitant]
  9. CALCIUM [Concomitant]
     Dosage: 500 UNK, UNK
  10. MULTIVITAMINS, PLAIN [Concomitant]
     Dosage: UNK
  11. TYLENOL ARTHRITIS [Concomitant]
     Dosage: 650 mg, UNK
  12. FOLIC ACID [Concomitant]
     Dosage: 20 mg, UNK
  13. GLUCOSAMINE AND CHONDROITIN [Concomitant]
  14. TIMOLOL                            /00371202/ [Concomitant]
     Dosage: SOL 0.25% OP
  15. HYDROCODONE/HOMATROP [Concomitant]

REACTIONS (1)
  - Bronchitis [Unknown]
